FAERS Safety Report 9337721 (Version 2)
Quarter: 2013Q2

REPORT INFORMATION
  Report Type: Spontaneous
  Country: US (occurrence: US)
  Receive Date: 20130607
  Receipt Date: 20130628
  Transmission Date: 20140414
  Serious: No
  Sender: FDA-Public Use
  Company Number: US-PFIZER INC-2013171140

PATIENT
  Sex: Male

DRUGS (2)
  1. CHILDRENS ADVIL [Suspect]
     Dosage: UNK
  2. ADVIL [Suspect]
     Dosage: UNK

REACTIONS (1)
  - Abdominal discomfort [Unknown]
